FAERS Safety Report 5397345-8 (Version None)
Quarter: 2007Q3

REPORT INFORMATION
  Report Type: 
  Country: None (occurrence: None)
  Receive Date: 20070718
  Receipt Date: 20061128
  Transmission Date: 20080115
  Serious: Yes (Hospitalization)
  Sender: FDA-Public Use
  Company Number: 2006149978

PATIENT
  Sex: Female

DRUGS (3)
  1. CELEBREX [Suspect]
     Dates: start: 19990101, end: 20040930
  2. BEXTRA [Suspect]
     Dates: start: 20011101, end: 20040930
  3. VIOXX [Suspect]
     Dates: start: 20020501, end: 20040930

REACTIONS (1)
  - MYOCARDIAL INFARCTION [None]
